FAERS Safety Report 5358370-6 (Version None)
Quarter: 2007Q2

REPORT INFORMATION
  Report Type: 
  Country: None (occurrence: None)
  Receive Date: 20070613
  Receipt Date: 20070613
  Transmission Date: 20071010
  Serious: Yes (Hospitalization)
  Sender: FDA-Public Use
  Company Number: None

PATIENT
  Sex: Female
  Weight: 60.45 kg

DRUGS (9)
  1. CISPLATIN [Suspect]
     Dosage: 30 MG
  2. DOXORUBICIN HYDROCHLORIDE [Suspect]
     Dosage: 45 MG
  3. G-CSF (FILGRASTIM, AMGEN) [Suspect]
     Dosage: 6 MG
  4. TAXOL [Suspect]
     Dosage: 125 MG
  5. ALBUTEROL [Concomitant]
  6. FOSMAX [Concomitant]
  7. LASIX [Concomitant]
  8. MEVACOR [Concomitant]
  9. SINGULAIR [Concomitant]

REACTIONS (2)
  - HAEMATEMESIS [None]
  - RECTAL HAEMORRHAGE [None]
